FAERS Safety Report 8043228-4 (Version None)
Quarter: 2012Q1

REPORT INFORMATION
  Report Type: 
  Country: None (occurrence: None)
  Receive Date: 20120112
  Receipt Date: 20120111
  Transmission Date: 20120608
  Serious: Yes (Death)
  Sender: FDA-Public Use
  Company Number: US-B.I. PHARMACEUTICALS,INC./RIDGEFIELD-2011-BP-28041BP

PATIENT
  Age: 75 Year
  Sex: Male

DRUGS (1)
  1. PRADAXA [Suspect]
     Indication: THROMBOSIS
     Dosage: 150 MG
     Route: 048
     Dates: start: 20110301, end: 20111201

REACTIONS (3)
  - INTESTINAL ISCHAEMIA [None]
  - SEPTIC SHOCK [None]
  - ABDOMINAL PAIN [None]
